FAERS Safety Report 5796970-X (Version None)
Quarter: 2008Q2

REPORT INFORMATION
  Report Type: 
  Country: None (occurrence: None)
  Receive Date: 20080618
  Receipt Date: 20070514
  Transmission Date: 20081010
  Serious: Yes (Other)
  Sender: FDA-Public Use
  Company Number: 200711993US

PATIENT
  Age: 50 Year
  Sex: Male
  Weight: 115.7 kg

DRUGS (3)
  1. LANTUS [Suspect]
     Indication: TYPE 2 DIABETES MELLITUS
     Dosage: 40-50 U QD INJ
     Route: 042
  2. ROSIGLITAZONE MALEATE [Concomitant]
  3. SIMVASTATIN, EZETIMIBE [Concomitant]

REACTIONS (5)
  - BLOOD GLUCOSE INCREASED [None]
  - HYPOGLYCAEMIA [None]
  - HYPOGLYCAEMIC UNCONSCIOUSNESS [None]
  - LETHARGY [None]
  - NAUSEA [None]
